FAERS Safety Report 9328144 (Version 3)
Quarter: 2013Q3

REPORT INFORMATION
  Report Type: Spontaneous
  Country: US (occurrence: US)
  Receive Date: 20130604
  Receipt Date: 20130701
  Transmission Date: 20140515
  Serious: No
  Sender: FDA-Public Use
  Company Number: US-VERTEX PHARMACEUTICALS INC-2013-006669

PATIENT
  Age: 57 Year
  Sex: Male
  Weight: 79 kg

DRUGS (3)
  1. INCIVEK [Suspect]
     Indication: HEPATITIS C
     Dosage: 750 MG, TID
     Route: 048
     Dates: start: 20130523, end: 20130625
  2. PEGASYS [Suspect]
     Indication: HEPATITIS C
     Dosage: 180 ?G
     Route: 058
     Dates: start: 20130523, end: 20130625
  3. RIBAVIRIN [Suspect]
     Indication: HEPATITIS C
     Dosage: 1000 MG, QD
     Route: 048
     Dates: start: 20130523, end: 20130625

REACTIONS (14)
  - Dizziness [Recovered/Resolved]
  - Nervousness [Recovered/Resolved]
  - Blood count abnormal [Not Recovered/Not Resolved]
  - Hyperhidrosis [Recovered/Resolved]
  - Dry mouth [Unknown]
  - Decreased appetite [Not Recovered/Not Resolved]
  - Fatigue [Not Recovered/Not Resolved]
  - Syncope [Recovered/Resolved]
  - Rash pruritic [Unknown]
  - Anal haemorrhage [Not Recovered/Not Resolved]
  - Proctalgia [Not Recovered/Not Resolved]
  - Anorectal discomfort [Unknown]
  - Frequent bowel movements [Not Recovered/Not Resolved]
  - Nausea [Unknown]
